FAERS Safety Report 8846569 (Version 1)
Quarter: 2012Q4

REPORT INFORMATION
  Report Type: 
  Country: IT (occurrence: IT)
  Receive Date: 20121017
  Receipt Date: 20121017
  Transmission Date: 20130627
  Serious: Yes (Hospitalization)
  Sender: FDA-Public Use
  Company Number: IT-TEVA-364387ISR

PATIENT
  Age: 70 Year
  Sex: Male

DRUGS (7)
  1. LANSOPRAZOLE [Suspect]
     Dosage: 1 dosage unit
     Route: 048
     Dates: start: 20120415, end: 20120924
  2. TICLOPIDINE [Suspect]
     Dosage: 1 dosage unit
     Route: 048
     Dates: start: 20120415, end: 20120924
  3. RAMIPRIL [Suspect]
     Dosage: 1 dosage unit
     Route: 048
     Dates: start: 20120415, end: 20120924
  4. LERCANIDIPINE [Suspect]
     Dosage: 1 dosage unit
     Route: 048
     Dates: start: 20120415, end: 20120924
  5. MINITRAN [Concomitant]
     Route: 062
  6. URBASON [Concomitant]
     Route: 062
     Dates: start: 19990101
  7. URBASON [Concomitant]
     Dates: start: 19990101

REACTIONS (4)
  - Drug-induced liver injury [Recovering/Resolving]
  - Product substitution issue [Recovering/Resolving]
  - Gamma-glutamyltransferase increased [None]
  - Product substitution issue [None]
